FAERS Safety Report 4565330-1 (Version None)
Quarter: 2005Q1

REPORT INFORMATION
  Report Type: 
  Country: None (occurrence: None)
  Receive Date: 20050126
  Receipt Date: 20050114
  Transmission Date: 20050727
  Serious: Yes (Hospitalization)
  Sender: FDA-Public Use
  Company Number: FR_041205435

PATIENT
  Age: 48 Year
  Sex: Female
  Weight: 59.8748 kg

DRUGS (2)
  1. PROZAC [Suspect]
     Indication: DEPRESSION
     Dosage: 20MG/1 DAY
     Dates: start: 20040801
  2. NARAMIG (NARATRIPTAN HYDROCHLORIDE) [Concomitant]

REACTIONS (2)
  - HYPERTENSION [None]
  - RENAL ARTERY STENOSIS [None]
